FAERS Safety Report 6220771-1 (Version None)
Quarter: 2009Q2

REPORT INFORMATION
  Report Type: 
  Country: None (occurrence: None)
  Receive Date: 20090610
  Receipt Date: 20090609
  Transmission Date: 20091009
  Serious: Yes (Hospitalization)
  Sender: FDA-Public Use
  Company Number: US-BAYER-200914631NA

PATIENT
  Age: 37 Year
  Sex: Female

DRUGS (1)
  1. MIRENA [Suspect]
     Indication: CONTRACEPTION
     Dosage: CINTINUOUS
     Route: 015
     Dates: start: 20080701

REACTIONS (5)
  - DISCOMFORT [None]
  - MENINGITIS [None]
  - PAIN [None]
  - VAGINAL HAEMORRHAGE [None]
  - VULVOVAGINAL DRYNESS [None]
